FAERS Safety Report 15712932 (Version 1)
Quarter: 2018Q4

REPORT INFORMATION
  Report Type: Spontaneous
  Country: BR (occurrence: BR)
  Receive Date: 20181212
  Receipt Date: 20181212
  Transmission Date: 20190205
  Serious: Yes (Other)
  Sender: FDA-Public Use
  Company Number: BR-ROCHE-1849283

PATIENT
  Sex: Female

DRUGS (2)
  1. RIVOTRIL [Suspect]
     Active Substance: CLONAZEPAM
     Indication: ANXIETY
     Dosage: 10 DROPS DURING THE DAY
     Route: 065
  2. MIRTAZAPINE. [Concomitant]
     Active Substance: MIRTAZAPINE

REACTIONS (13)
  - Tremor [Unknown]
  - Confusional state [Unknown]
  - Feeling of despair [Unknown]
  - Insomnia [Unknown]
  - Fear [Unknown]
  - Lung neoplasm malignant [Recovered/Resolved]
  - Expired product administered [Unknown]
  - Feeling cold [Unknown]
  - Anxiety [Unknown]
  - Ill-defined disorder [Unknown]
  - Nervousness [Unknown]
  - Incorrect dose administered [Unknown]
  - Malaise [Unknown]

NARRATIVE: CASE EVENT DATE: 2013
